FAERS Safety Report 8795800 (Version 1)
Quarter: 2012Q4

REPORT INFORMATION
  Report Type: 
  Country: US (occurrence: US)
  Receive Date: 20120919
  Receipt Date: 20120919
  Transmission Date: 20130627
  Serious: Yes (Hospitalization)
  Sender: FDA-Public Use
  Company Number: US-ELI_LILLY_AND_COMPANY-US201207004152

PATIENT
  Sex: Male
  Weight: 79.37 kg

DRUGS (3)
  1. HUMALOG LISPRO [Suspect]
     Indication: DIABETES MELLITUS
     Dosage: 15 u, tid
     Route: 058
     Dates: start: 20120522
  2. HUMALOG LISPRO [Suspect]
     Dosage: 15 u, tid
     Route: 058
  3. HUMALOG LISPRO [Suspect]
     Dosage: 15 u, bid
     Route: 058

REACTIONS (1)
  - Pneumonia [Recovered/Resolved]
